FAERS Safety Report 14557733 (Version 1)
Quarter: 2018Q1

REPORT INFORMATION
  Report Type: Spontaneous
  Country: US (occurrence: US)
  Receive Date: 20180220
  Receipt Date: 20180220
  Transmission Date: 20180509
  Serious: No
  Sender: FDA-Public Use
  Company Number: None

PATIENT
  Age: 62 Year
  Sex: Male

DRUGS (1)
  1. FARYDAK [Suspect]
     Active Substance: PANOBINOSTAT
     Indication: PLASMA CELL MYELOMA
     Dosage: 1 DAILY ON MON, WED, AND FRIDAY FOR 2 WEEKS ON AND 1
     Route: 048
     Dates: start: 20180118, end: 20180122

REACTIONS (2)
  - Blood count abnormal [None]
  - Diarrhoea [None]

NARRATIVE: CASE EVENT DATE: 20180122
